FAERS Safety Report 10418367 (Version 2)
Quarter: 2014Q3

REPORT INFORMATION
  Report Type: Spontaneous
  Country: FR (occurrence: FR)
  Receive Date: 20140829
  Receipt Date: 20140910
  Transmission Date: 20150326
  Serious: Yes (Hospitalization)
  Sender: FDA-Public Use
  Company Number: FR-SA-2014SA113933

PATIENT
  Age: 69 Year
  Sex: Male
  Weight: 99 kg

DRUGS (11)
  1. COVERSYL [Suspect]
     Active Substance: PERINDOPRIL
     Indication: PRODUCT USED FOR UNKNOWN INDICATION
     Dosage: END DATE: 02 DEC 13 OR 04 DEC 13
     Route: 048
     Dates: end: 20131202
  2. CORDARONE [Concomitant]
     Active Substance: AMIODARONE HYDROCHLORIDE
     Route: 048
     Dates: start: 201309, end: 20131202
  3. LASILIX [Suspect]
     Active Substance: FUROSEMIDE
     Indication: PRODUCT USED FOR UNKNOWN INDICATION
     Dosage: FREQUENCY: BID OR QD
     Route: 048
     Dates: start: 201306, end: 20131202
  4. ALDACTONE [Suspect]
     Active Substance: SPIRONOLACTONE
     Indication: PRODUCT USED FOR UNKNOWN INDICATION
     Route: 048
     Dates: start: 201306, end: 20131202
  5. PREVISCAN [Concomitant]
     Active Substance: FLUINDIONE
     Dosage: DOSAGE FREQUENCY: 1.25 TO 1.5 DF
     Route: 048
     Dates: start: 201306, end: 20131202
  6. CHONDROSULF [Concomitant]
     Active Substance: CHONDROITIN SULFATE (CHICKEN)
  7. CARDENSIEL [Concomitant]
     Active Substance: BISOPROLOL FUMARATE
     Route: 048
  8. SPIRIVA [Concomitant]
     Active Substance: TIOTROPIUM BROMIDE MONOHYDRATE
     Dosage: DOSAGE FREQUENCY: 2 SPRAYS DAILY
  9. OSLIF BREEZHALER [Concomitant]
     Active Substance: INDACATEROL
  10. ZYLORIC [Concomitant]
     Active Substance: ALLOPURINOL
     Dosage: TREATMENT END DATE: 02-DEC-2013 OR 04-DEC-2013 (NOT CLEAR)
     Route: 048
     Dates: end: 20131202
  11. KAYEXALATE [Concomitant]
     Active Substance: SODIUM POLYSTYRENE SULFONATE

REACTIONS (1)
  - Hyperkalaemia [Recovered/Resolved]

NARRATIVE: CASE EVENT DATE: 20131202
